FAERS Safety Report 4920149-4 (Version None)
Quarter: 2006Q1

REPORT INFORMATION
  Report Type: 
  Country: None (occurrence: None)
  Receive Date: 20060217
  Receipt Date: 20060202
  Transmission Date: 20060701
  Serious: Yes (Other)
  Sender: FDA-Public Use
  Company Number: ES-2006-002155

PATIENT
  Sex: Female

DRUGS (2)
  1. BETAFERON(INTERFERON BETA - 1B) INJECTION, 250UG [Suspect]
     Indication: MULTIPLE SCLEROSIS
     Dosage: 8 MIU, SUBCUTANEOUS
     Route: 058
     Dates: start: 20050201
  2. TEGRETOL [Suspect]
     Dosage: ORAL
     Route: 048

REACTIONS (1)
  - LUPUS-LIKE SYNDROME [None]
